FAERS Safety Report 10186002 (Version 1)
Quarter: 2014Q2

REPORT INFORMATION
  Report Type: Spontaneous
  Country: SE (occurrence: SE)
  Receive Date: 20140521
  Receipt Date: 20140521
  Transmission Date: 20141212
  Serious: Yes (Hospitalization)
  Sender: FDA-Public Use
  Company Number: SE-BRISTOL-MYERS SQUIBB COMPANY-20731212

PATIENT
  Age: 81 Year
  Sex: Female

DRUGS (8)
  1. ELIQUIS [Suspect]
     Dosage: FLM COATED TABLET
     Dates: start: 201404
  2. PLAVIX TABS [Suspect]
     Dates: start: 201404
  3. FURIX [Suspect]
     Dosage: TABLET
     Dates: start: 201404
  4. SIMVASTATIN [Concomitant]
  5. POTASSIUM [Concomitant]
  6. FOLACIN [Concomitant]
  7. BISOPROLOL [Concomitant]
  8. CYANOCOBALAMIN [Concomitant]

REACTIONS (4)
  - Unresponsive to stimuli [Not Recovered/Not Resolved]
  - Confusional state [Not Recovered/Not Resolved]
  - Diarrhoea [Not Recovered/Not Resolved]
  - Dizziness [Not Recovered/Not Resolved]
